FAERS Safety Report 4512746-5 (Version None)
Quarter: 2004Q4

REPORT INFORMATION
  Report Type: 
  Country: None (occurrence: None)
  Receive Date: 20040928
  Receipt Date: 20040624
  Transmission Date: 20050328
  Serious: No
  Sender: FDA-Public Use
  Company Number: 04P-163-0264782-00

PATIENT
  Age: 70 Year
  Sex: Female
  Weight: 77.1115 kg

DRUGS (12)
  1. HUMIRA [Suspect]
     Indication: RHEUMATOID ARTHRITIS
     Dosage: 40 MG 1 IN 2 WK SUBCUTANEOUS
     Route: 058
     Dates: start: 20031020, end: 20040623
  2. WARFARIN SODIUM [Concomitant]
  3. PREDNISONE [Concomitant]
  4. FOLIC ACID [Concomitant]
  5. OXYBUTYNIN [Concomitant]
  6. CARVEDILOL [Concomitant]
  7. CO-DIOVAN [Concomitant]
  8. LEXAPRO [Concomitant]
  9. MULTI-VITAMINS [Concomitant]
  10. CALCIUM [Concomitant]
  11. RISENDRONATE SODIUM [Concomitant]
  12. METOPROLOL SUCCINATE [Concomitant]

REACTIONS (3)
  - DRUG EFFECT DECREASED [None]
  - INJECTION SITE BURNING [None]
  - OEDEMA PERIPHERAL [None]
